FAERS Safety Report 9093260 (Version 2)
Quarter: 2013Q3

REPORT INFORMATION
  Report Type: Spontaneous
  Country: FR (occurrence: FR)
  Receive Date: 20130201
  Receipt Date: 20130703
  Transmission Date: 20140515
  Serious: Yes (Hospitalization)
  Sender: FDA-Public Use
  Company Number: FR-ROCHE-1184048

PATIENT
  Sex: Male

DRUGS (3)
  1. AVASTIN [Suspect]
     Indication: PRODUCT USED FOR UNKNOWN INDICATION
     Route: 042
     Dates: start: 20100927, end: 201112
  2. AVASTIN [Suspect]
     Route: 065
     Dates: start: 201202
  3. CAMPTO [Suspect]
     Indication: PRODUCT USED FOR UNKNOWN INDICATION
     Route: 042
     Dates: start: 20100927, end: 20101105

REACTIONS (3)
  - Nephrotic syndrome [Recovered/Resolved with Sequelae]
  - Glomerulonephritis [Recovered/Resolved with Sequelae]
  - Thrombotic microangiopathy [Recovered/Resolved with Sequelae]
